FAERS Safety Report 9345070 (Version 1)
Quarter: 2013Q2

REPORT INFORMATION
  Report Type: Spontaneous
  Country: US (occurrence: US)
  Receive Date: 20130612
  Receipt Date: 20130612
  Transmission Date: 20140414
  Serious: No
  Sender: FDA-Public Use
  Company Number: US-009507513-1306USA004632

PATIENT
  Age: 18 Year
  Sex: Female

DRUGS (2)
  1. IMPLANON [Suspect]
     Indication: CONTRACEPTION
     Dosage: UNK, 1 ROD FOR 3 YEARS
     Route: 059
     Dates: start: 2012
  2. ALBUTEROL [Concomitant]

REACTIONS (2)
  - Weight increased [Unknown]
  - Menorrhagia [Unknown]
